FAERS Safety Report 8821399 (Version 3)
Quarter: 2012Q4

REPORT INFORMATION
  Report Type: 
  Country: US (occurrence: US)
  Receive Date: 20121002
  Receipt Date: 20121017
  Transmission Date: 20130627
  Serious: No
  Sender: FDA-Public Use
  Company Number: US-VERTEX PHARMACEUTICAL INC.-2012-021960

PATIENT
  Sex: Female
  Weight: 51 kg

DRUGS (11)
  1. VX-950 [Suspect]
     Indication: HEPATITIS C
     Dosage: 750 mg, tid
     Route: 048
     Dates: start: 20120824
  2. PEGINTRON                          /01543001/ [Concomitant]
     Indication: HEPATITIS C
     Dosage: 80 ?g, UNK
     Route: 058
     Dates: start: 20120824
  3. RIBASPHERE [Concomitant]
     Indication: HEPATITIS C
     Dosage: 400 mg, bid
     Route: 048
     Dates: start: 20120824
  4. VALACYCLOVIR HYDROCHLORIDE [Concomitant]
  5. TRAZODONE [Concomitant]
     Dosage: UNK, prn
  6. LEVOTHYROXINE [Concomitant]
  7. LEXAPRO [Concomitant]
  8. ESTROGEN NOS W/METHYLTESTOSTERONE [Concomitant]
  9. MEDROXYPROGESTERONE [Concomitant]
  10. FISH OIL [Concomitant]
  11. CALCIUM 500+D [Concomitant]

REACTIONS (6)
  - Irritability [Unknown]
  - Fatigue [Unknown]
  - Rash [Unknown]
  - Diarrhoea [Unknown]
  - Pruritus [Unknown]
  - Anal pruritus [Unknown]
